FAERS Safety Report 9898125 (Version 2)
Quarter: 2014Q1

REPORT INFORMATION
  Report Type: Spontaneous
  Country: US (occurrence: US)
  Receive Date: 20140214
  Receipt Date: 20140214
  Transmission Date: 20141002
  Serious: Yes (Hospitalization)
  Sender: FDA-Public Use
  Company Number: US-GILEAD-2011-0041053

PATIENT
  Sex: Male
  Weight: 86.18 kg

DRUGS (27)
  1. LETAIRIS [Suspect]
     Indication: PULMONARY HYPERTENSION
     Route: 048
     Dates: start: 20110504
  2. LETAIRIS [Suspect]
     Indication: CARDIAC DISORDER
  3. AMIODARONE HYDROCHLORIDE [Concomitant]
  4. DIGOXIN [Concomitant]
  5. IMDUR [Concomitant]
  6. BYSTOLIC [Concomitant]
  7. ATORVASTATIN [Concomitant]
  8. COUMADIN [Concomitant]
  9. ASPIRIN [Concomitant]
  10. SPIRIVA [Concomitant]
  11. ADVAIR [Concomitant]
  12. ALBUTEROL SULFATE [Concomitant]
  13. LASIX [Concomitant]
  14. PREDNISONE [Concomitant]
  15. CHLORPHENIRAMINE-HYDROCODONE [Concomitant]
  16. MECLIZINE [Concomitant]
  17. PROTONIX [Concomitant]
  18. STOOL SOFTENER [Concomitant]
  19. HYDROCODONE-ACETAMINOPHEN [Concomitant]
  20. TYLENOL [Concomitant]
  21. LORAZEPAM [Concomitant]
  22. TEMAZEPAM [Concomitant]
  23. LEXAPRO [Concomitant]
  24. REQUIP [Concomitant]
  25. VITAMIN D [Concomitant]
  26. MOXIFLOXACIN [Concomitant]
  27. POTASSIUM CHLORIDE [Concomitant]

REACTIONS (1)
  - Dyspnoea [Unknown]
